FAERS Safety Report 5815758-4 (Version None)
Quarter: 2008Q3

REPORT INFORMATION
  Report Type: 
  Country: None (occurrence: None)
  Receive Date: 20080721
  Receipt Date: 20080506
  Transmission Date: 20090109
  Serious: No
  Sender: FDA-Public Use
  Company Number: US-TYCO HEALTHCARE/MALLINCKRODT-T200800812

PATIENT

DRUGS (13)
  1. TECHNESCAN PYP KIT [Suspect]
     Indication: MULTIPLE GATED ACQUISITION SCAN
     Dates: start: 20080506, end: 20080506
  2. TECHNESCAN PYP KIT [Suspect]
     Dates: start: 20080501, end: 20080501
  3. ULTRA-TECHNEKOW [Concomitant]
     Indication: MULTIPLE GATED ACQUISITION SCAN
     Dates: start: 20080506, end: 20080506
  4. WARFARIN SODIUM [Concomitant]
  5. FUROSEMIDE [Concomitant]
  6. DIGOXIN [Concomitant]
  7. CRESTOR [Concomitant]
  8. COREG [Concomitant]
  9. SENSIPAR [Concomitant]
  10. RENALEL [Concomitant]
  11. PHOSFID [Concomitant]
  12. RAMIPRIL [Concomitant]
  13. INSULIN [Concomitant]

REACTIONS (1)
  - DRUG INEFFECTIVE [None]
